FAERS Safety Report 9563001 (Version 1)
Quarter: 2013Q3

REPORT INFORMATION
  Report Type: Report from Study
  Country: BR (occurrence: BR)
  Receive Date: 20130927
  Receipt Date: 20130927
  Transmission Date: 20140515
  Serious: Yes (Death, Hospitalization, Other)
  Sender: FDA-Public Use
  Company Number: PHHY2013BR106460

PATIENT
  Age: 87 Year
  Sex: Female
  Weight: 35 kg

DRUGS (4)
  1. NEOTIAPIM [Suspect]
     Indication: SENILE DEMENTIA
     Dosage: 1 DF, QD
  2. NEOTIAPIM [Suspect]
     Dosage: 0.5 DF, MORNING AND NIGHT
  3. ALENIA [Concomitant]
  4. VASTAREL [Concomitant]
     Dosage: 35 MG, BID
     Route: 048

REACTIONS (11)
  - Pneumonia [Fatal]
  - Multi-organ failure [Fatal]
  - Bronchitis [Unknown]
  - Concomitant disease aggravated [Unknown]
  - Dyspnoea [Unknown]
  - Body temperature decreased [Unknown]
  - Hypersomnia [Unknown]
  - Condition aggravated [Unknown]
  - Confusional state [Unknown]
  - Feeling abnormal [Unknown]
  - Wrong technique in drug usage process [Unknown]
